FAERS Safety Report 5024064-X (Version None)
Quarter: 2006Q2

REPORT INFORMATION
  Report Type: 
  Country: None (occurrence: None)
  Receive Date: 20060612
  Receipt Date: 20060221
  Transmission Date: 20061013
  Serious: Yes (Hospitalization, Disabling)
  Sender: FDA-Public Use
  Company Number: FR-MERCK-0602FRA00083

PATIENT
  Age: 51 Year
  Sex: Male

DRUGS (5)
  1. ZOCOR [Suspect]
     Indication: MYOCARDIAL INFARCTION
     Route: 048
     Dates: start: 19980101, end: 20060201
  2. ZOCOR [Suspect]
     Route: 048
     Dates: start: 20060201, end: 20060301
  3. MOLSIDOMINE [Concomitant]
     Route: 048
  4. ASPIRIN LYSINE [Concomitant]
     Route: 048
  5. VERAPAMIL HYDROCHLORIDE [Concomitant]
     Route: 048

REACTIONS (4)
  - BLOOD CREATINE PHOSPHOKINASE INCREASED [None]
  - CARPAL TUNNEL SYNDROME [None]
  - CATARACT [None]
  - MYALGIA [None]
